FAERS Safety Report 6738675-4 (Version None)
Quarter: 2010Q2

REPORT INFORMATION
  Report Type: 
  Country: None (occurrence: None)
  Receive Date: 20100524
  Receipt Date: 20100512
  Transmission Date: 20101027
  Serious: Yes (Other)
  Sender: FDA-Public Use
  Company Number: US-JNJCH-2010012133

PATIENT
  Age: 30 Month
  Sex: Male
  Weight: 15.9 kg

DRUGS (1)
  1. DESITIN RAPID RELIEF CREAMY [Suspect]
     Indication: PROPHYLAXIS
     Dosage: TEXT:^HALF INCH TO INCH^ EVERY DIAPER CHANGE
     Route: 061
     Dates: start: 20100409, end: 20100409

REACTIONS (3)
  - PENILE SWELLING [None]
  - SKIN DISCOLOURATION [None]
  - STAPHYLOCOCCAL INFECTION [None]
